FAERS Safety Report 13886400 (Version 1)
Quarter: 2017Q3

REPORT INFORMATION
  Report Type: Report from Study
  Country: US (occurrence: US)
  Receive Date: 20170821
  Receipt Date: 20170821
  Transmission Date: 20171127
  Serious: Yes (Hospitalization)
  Sender: FDA-Public Use
  Company Number: US-JNJFOC-20170717568

PATIENT
  Sex: Female

DRUGS (25)
  1. IMBRUVICA [Suspect]
     Active Substance: IBRUTINIB
     Indication: CHRONIC LYMPHOCYTIC LEUKAEMIA
     Route: 048
     Dates: start: 20170325
  2. ASPIRIN. [Concomitant]
     Active Substance: ASPIRIN
  3. ATORVASTATIN CALCIUM. [Concomitant]
     Active Substance: ATORVASTATIN CALCIUM
  4. PRILOSEC [Concomitant]
     Active Substance: OMEPRAZOLE MAGNESIUM
  5. PYRIDOXINE HCL [Concomitant]
     Active Substance: PYRIDOXINE HYDROCHLORIDE
  6. VITAMIN D [Concomitant]
     Active Substance: CHOLECALCIFEROL
  7. LOVENOX [Concomitant]
     Active Substance: ENOXAPARIN SODIUM
  8. IMBRUVICA [Suspect]
     Active Substance: IBRUTINIB
     Indication: CHRONIC LYMPHOCYTIC LEUKAEMIA
     Route: 048
     Dates: start: 20170324, end: 2017
  9. LORATADINE. [Concomitant]
     Active Substance: LORATADINE
  10. METOPROLOL TARTRATE. [Concomitant]
     Active Substance: METOPROLOL TARTRATE
  11. TYLENOL [Concomitant]
     Active Substance: ACETAMINOPHEN
  12. HCTZ [Concomitant]
     Active Substance: HYDROCHLOROTHIAZIDE
  13. VITAMIN B6 [Concomitant]
     Active Substance: PYRIDOXINE HYDROCHLORIDE
  14. MELATONIN [Concomitant]
     Active Substance: MELATONIN
  15. VITAMIN B [Concomitant]
     Active Substance: VITAMIN B
  16. GABAPENTIN. [Concomitant]
     Active Substance: GABAPENTIN
  17. POTASSIUM [Concomitant]
     Active Substance: POTASSIUM
  18. DIPHENHYDRAMIN [Concomitant]
     Active Substance: DIPHENHYDRAMINE
  19. DOCUSATE [Concomitant]
     Active Substance: DOCUSATE
  20. SENNA [Concomitant]
     Active Substance: SENNA LEAF\SENNOSIDES\SENNOSIDES A AND B
  21. LYRICA [Concomitant]
     Active Substance: PREGABALIN
  22. TOPROL XL [Concomitant]
     Active Substance: METOPROLOL SUCCINATE
  23. NORVASC [Concomitant]
     Active Substance: AMLODIPINE BESYLATE
  24. CALCIUM CARBONATE. [Concomitant]
     Active Substance: CALCIUM CARBONATE
  25. VITAMIN B12 [Concomitant]
     Active Substance: CYANOCOBALAMIN

REACTIONS (2)
  - Haematochezia [Unknown]
  - Haemorrhage [Unknown]

NARRATIVE: CASE EVENT DATE: 2017
